FAERS Safety Report 7309337-X (Version None)
Quarter: 2011Q1

REPORT INFORMATION
  Report Type: 
  Country: None (occurrence: None)
  Receive Date: 20110223
  Receipt Date: 20110219
  Transmission Date: 20110831
  Serious: Yes (Other)
  Sender: FDA-Public Use
  Company Number: US-PFIZER INC-2011036826

PATIENT
  Sex: Female
  Weight: 42.6 kg

DRUGS (9)
  1. CARBIDOPA [Concomitant]
     Dosage: UNK
  2. ADVAIR HFA [Concomitant]
     Dosage: UNK
  3. ACTIVENT [Concomitant]
     Dosage: UNK
  4. CHANTIX [Suspect]
     Dosage: 1 MG, 2X/DAY
     Route: 048
     Dates: start: 20110101, end: 20110214
  5. ALBUTEROL [Concomitant]
     Dosage: UNK
  6. SINGULAIR [Concomitant]
     Dosage: UNK
  7. CHANTIX [Suspect]
     Indication: SMOKING CESSATION THERAPY
     Dosage: 0.5 MG, 1X/DAY
     Route: 048
     Dates: start: 20101207, end: 20110101
  8. SEROQUEL [Concomitant]
     Dosage: UNK
  9. XANAX [Concomitant]
     Dosage: 5 MG, UNK

REACTIONS (7)
  - MOVEMENT DISORDER [None]
  - HYPOKINESIA [None]
  - ABNORMAL DREAMS [None]
  - CRYING [None]
  - HALLUCINATION [None]
  - CONSTIPATION [None]
  - ABDOMINAL DISTENSION [None]
